FAERS Safety Report 9091424 (Version 1)
Quarter: 2013Q1

REPORT INFORMATION
  Report Type: Report from Study
  Country: US (occurrence: US)
  Receive Date: 20130201
  Receipt Date: 20130201
  Transmission Date: 20140127
  Serious: No
  Sender: FDA-Public Use
  Company Number: US-ABBOTT-12P-163-1019911-00

PATIENT
  Age: 49 Year
  Sex: Female

DRUGS (4)
  1. HUMIRA [Suspect]
     Indication: CROHN^S DISEASE
     Dates: start: 20120912
  2. LEVOTHYROXIN [Concomitant]
     Indication: HYPOTHYROIDISM
  3. PENTASA [Concomitant]
     Indication: CROHN^S DISEASE
     Dosage: HARDLY TAKING ANYMORE
  4. PERCOCET [Concomitant]
     Indication: PAIN

REACTIONS (1)
  - Crohn^s disease [Not Recovered/Not Resolved]
